FAERS Safety Report 24537304 (Version 5)
Quarter: 2025Q3

REPORT INFORMATION
  Report Type: Report from Study
  Country: CA (occurrence: CA)
  Receive Date: 20241022
  Receipt Date: 20250925
  Transmission Date: 20251020
  Serious: Yes (Other)
  Sender: LUNDBECK
  Company Number: CA-LUNDBECK-DKLU4002208

PATIENT
  Age: 42 Year
  Sex: Female
  Weight: 82 kg

DRUGS (10)
  1. VYEPTI [Suspect]
     Active Substance: EPTINEZUMAB-JJMR
     Indication: Migraine
     Dosage: 100 MILLIGRAM
     Route: 041
     Dates: start: 20240502
  2. TRINTELLIX [Concomitant]
     Active Substance: VORTIOXETINE HYDROBROMIDE
     Indication: Product used for unknown indication
  3. INDOMETHACIN [Concomitant]
     Active Substance: INDOMETHACIN
     Indication: Product used for unknown indication
  4. VYVANSE [Concomitant]
     Active Substance: LISDEXAMFETAMINE DIMESYLATE
     Indication: Product used for unknown indication
  5. IBUPROFEN [Concomitant]
     Active Substance: IBUPROFEN
     Indication: Product used for unknown indication
  6. PROPRANOLOL [Concomitant]
     Active Substance: PROPRANOLOL HYDROCHLORIDE
     Indication: Product used for unknown indication
     Dates: start: 20210210
  7. NAPROXEN [Concomitant]
     Active Substance: NAPROXEN
     Indication: Product used for unknown indication
  8. TYLENOL [Concomitant]
     Active Substance: ACETAMINOPHEN
     Indication: Product used for unknown indication
  9. METHYLPREDNISOLONE [Concomitant]
     Active Substance: METHYLPREDNISOLONE
     Indication: Product used for unknown indication
  10. BENADRYL [Concomitant]
     Active Substance: DIPHENHYDRAMINE HYDROCHLORIDE
     Indication: Product used for unknown indication

REACTIONS (23)
  - Blindness [Recovering/Resolving]
  - Hemiparesis [Recovered/Resolved]
  - Eye pain [Recovering/Resolving]
  - Pain in jaw [Recovering/Resolving]
  - Infusion site reaction [Unknown]
  - Infusion site coldness [Unknown]
  - Irritability [Not Recovered/Not Resolved]
  - Vision blurred [Recovered/Resolved]
  - Paraesthesia [Recovered/Resolved]
  - Headache [Not Recovered/Not Resolved]
  - Ocular hyperaemia [Recovered/Resolved]
  - Eye pruritus [Not Recovered/Not Resolved]
  - Throat irritation [Not Recovered/Not Resolved]
  - Tendon pain [Not Recovered/Not Resolved]
  - Tendon rupture [Recovering/Resolving]
  - Tension headache [Recovering/Resolving]
  - Eye irritation [Recovered/Resolved]
  - Migraine [Recovering/Resolving]
  - Bone pain [Recovering/Resolving]
  - Fatigue [Recovering/Resolving]
  - Restless legs syndrome [Recovering/Resolving]
  - Joint dislocation [Recovering/Resolving]
  - Tendon disorder [Recovering/Resolving]

NARRATIVE: CASE EVENT DATE: 20240502
